FAERS Safety Report 6174793-X (Version None)
Quarter: 2009Q2

REPORT INFORMATION
  Report Type: 
  Country: None (occurrence: None)
  Receive Date: 20090430
  Receipt Date: 20080926
  Transmission Date: 20091009
  Serious: No
  Sender: FDA-Public Use
  Company Number: US-ASTRAZENECA-2008UW20358

PATIENT
  Age: 78 Year
  Sex: Female

DRUGS (5)
  1. NEXIUM [Suspect]
     Indication: GASTROOESOPHAGEAL REFLUX DISEASE
     Route: 048
     Dates: start: 20060101
  2. NEXIUM [Suspect]
     Indication: HIATUS HERNIA
     Route: 048
     Dates: start: 20060101
  3. STEROID INJECTIONS [Concomitant]
  4. SPIRIVA [Concomitant]
  5. ADVAIR HFA [Concomitant]

REACTIONS (2)
  - CHOLELITHIASIS [None]
  - HEPATIC ENZYME INCREASED [None]
